FAERS Safety Report 7580880-1 (Version None)
Quarter: 2011Q2

REPORT INFORMATION
  Report Type: 
  Country: None (occurrence: None)
  Receive Date: 20110629
  Receipt Date: 20110615
  Transmission Date: 20111010
  Serious: Yes (Other)
  Sender: FDA-Public Use
  Company Number: US-WATSON-2011-08681

PATIENT
  Sex: Female

DRUGS (2)
  1. CLINDAMYCIN [Suspect]
     Indication: ANIMAL BITE
     Dosage: UNK
     Route: 048
     Dates: start: 20110517
  2. CIPROFLOXACIN HCL [Suspect]
     Indication: ANIMAL BITE
     Dosage: UNKNOWN
     Route: 048
     Dates: start: 20110517

REACTIONS (8)
  - VISION BLURRED [None]
  - ABDOMINAL DISTENSION [None]
  - VOMITING [None]
  - DIZZINESS [None]
  - SWOLLEN TONGUE [None]
  - DYSPNOEA [None]
  - BRAIN OEDEMA [None]
  - RASH PRURITIC [None]
